FAERS Safety Report 16314751 (Version 1)
Quarter: 2019Q2

REPORT INFORMATION
  Report Type: Spontaneous
  Country: ES (occurrence: ES)
  Receive Date: 20190515
  Receipt Date: 20190515
  Transmission Date: 20190711
  Serious: Yes (Hospitalization)
  Sender: FDA-Public Use
  Company Number: ES-AMGEN-ESPSP2019074816

PATIENT
  Age: 71 Year
  Sex: Female
  Weight: 38 kg

DRUGS (5)
  1. URBASON [METHYLPREDNISOLONE] [Suspect]
     Active Substance: METHYLPREDNISOLONE
     Indication: RHEUMATOID ARTHRITIS
     Route: 048
     Dates: start: 2010, end: 20190208
  2. MASTICAL D [Concomitant]
     Indication: OSTEOPOROSIS
     Dosage: 500 MILLIGRAM
     Route: 048
  3. PROLIA [Suspect]
     Active Substance: DENOSUMAB
     Indication: OSTEOPOROSIS
     Dosage: 60 MILLIGRAM, Q6MO
     Route: 058
     Dates: start: 2018
  4. METOTREXATO [METHOTREXATE] [Suspect]
     Active Substance: METHOTREXATE
     Indication: RHEUMATOID ARTHRITIS
     Dosage: 2.5 MILLIGRAM, QD
     Route: 048
     Dates: start: 20100401, end: 20190119
  5. FOLIC ACID. [Concomitant]
     Active Substance: FOLIC ACID
     Indication: RHEUMATOID ARTHRITIS
     Dosage: 5 MILLIGRAM, QD
     Route: 048

REACTIONS (1)
  - Influenza [Recovered/Resolved]

NARRATIVE: CASE EVENT DATE: 20190118
